FAERS Safety Report 22273139 (Version 1)
Quarter: 2023Q2

REPORT INFORMATION
  Report Type: Spontaneous
  Country: IT (occurrence: IT)
  Receive Date: 20230502
  Receipt Date: 20230502
  Transmission Date: 20230721
  Serious: Yes (Hospitalization)
  Sender: FDA-Public Use
  Company Number: None

PATIENT
  Age: 5 Year
  Sex: Male
  Weight: 18.4 kg

DRUGS (15)
  1. TOPIRAMATE [Suspect]
     Active Substance: TOPIRAMATE
     Indication: Epilepsy
     Dates: start: 20190101
  2. VALPROATE SODIUM [Suspect]
     Active Substance: VALPROATE SODIUM
     Indication: Epilepsy
     Dates: start: 20190101
  3. DIAZEPAM [Concomitant]
     Active Substance: DIAZEPAM
  4. MORPHINE [Concomitant]
     Active Substance: MORPHINE
  5. TRAZODONE HYDROCHLORIDE [Concomitant]
     Active Substance: TRAZODONE HYDROCHLORIDE
  6. CLONIDINE [Concomitant]
     Active Substance: CLONIDINE
     Dosage: 1 PATCH + 1/2 EVERY 6 DAYS
  7. GABAPENTIN [Concomitant]
     Active Substance: GABAPENTIN
  8. CHOLECALCIFEROL [Concomitant]
     Active Substance: CHOLECALCIFEROL
  9. UNASYN [Concomitant]
     Active Substance: AMPICILLIN SODIUM\SULBACTAM SODIUM
  10. FLUTICASONE [Concomitant]
     Active Substance: FLUTICASONE
  11. VALIUM [Concomitant]
     Active Substance: DIAZEPAM
  12. ZOFRAN [Concomitant]
     Active Substance: ONDANSETRON HYDROCHLORIDE
  13. NIAPRAZINE [Concomitant]
     Active Substance: NIAPRAZINE
  14. BACLOFEN [Concomitant]
     Active Substance: BACLOFEN
  15. NITRAZEPAM [Concomitant]
     Active Substance: NITRAZEPAM

REACTIONS (1)
  - Renal tubular acidosis [Not Recovered/Not Resolved]

NARRATIVE: CASE EVENT DATE: 20230402
